FAERS Safety Report 8836054 (Version 2)
Quarter: 2012Q4

REPORT INFORMATION
  Report Type: 
  Country: US (occurrence: US)
  Receive Date: 20121011
  Receipt Date: 20121026
  Transmission Date: 20130627
  Serious: Yes (Other)
  Sender: FDA-Public Use
  Company Number: 2012SP002786

PATIENT
  Age: 29 Year
  Sex: Male
  Weight: 100 kg

DRUGS (5)
  1. LATUDA [Suspect]
     Indication: SCHIZOPHRENIA
     Route: 048
     Dates: end: 20121001
  2. LATUDA [Suspect]
     Indication: SCHIZOPHRENIA
     Route: 048
  3. LATUDA [Suspect]
     Indication: SCHIZOPHRENIA
     Route: 048
     Dates: start: 20120320
  4. GEODON /01487002/ [Concomitant]
     Indication: SCHIZOPHRENIA
     Dates: start: 20121004
  5. INVEGA [Concomitant]
     Indication: SCHIZOPHRENIA
     Dates: start: 20120221, end: 20120306

REACTIONS (5)
  - Blood pressure increased [Recovered/Resolved]
  - Oromandibular dystonia [Recovered/Resolved]
  - Drooling [Recovered/Resolved]
  - Hyperhidrosis [Recovered/Resolved]
  - Pyrexia [Recovered/Resolved]
